FAERS Safety Report 5493088-0 (Version None)
Quarter: 2007Q4

REPORT INFORMATION
  Report Type: 
  Country: None (occurrence: None)
  Receive Date: 20071010
  Receipt Date: 20071010
  Transmission Date: 20080405
  Serious: Yes (Hospitalization)
  Sender: FDA-Public Use
  Company Number: 236913K06USA

PATIENT
  Age: 45 Year
  Sex: Female
  Weight: 56.6996 kg

DRUGS (5)
  1. REBIF [Suspect]
     Indication: OFF LABEL USE
     Dosage: 44 MCG, 3 IN 1 WEEKS, SUBCUTANEOUS
     Route: 058
     Dates: start: 20060626, end: 20060101
  2. TOPAMAX [Concomitant]
  3. LEVAQUIN [Concomitant]
  4. FLONASE NASAL SPRAY (FLUTICASONE PROPIONATE) [Concomitant]
  5. PROTONIX [Concomitant]

REACTIONS (4)
  - ACUTE SINUSITIS [None]
  - MULTIPLE SCLEROSIS [None]
  - REFUSAL OF TREATMENT BY PATIENT [None]
  - UPPER RESPIRATORY TRACT INFECTION [None]
